FAERS Safety Report 4628982-3 (Version None)
Quarter: 2005Q2

REPORT INFORMATION
  Report Type: 
  Country: None (occurrence: None)
  Receive Date: 20050405
  Receipt Date: 20050405
  Transmission Date: 20051028
  Serious: Yes (Hospitalization, Disabling, Other)
  Sender: FDA-Public Use
  Company Number: None

PATIENT
  Age: 48 Year
  Sex: Female
  Weight: 47.6277 kg

DRUGS (4)
  1. METHYLPREDNISOLONE ACETATE [Suspect]
     Indication: BACK PAIN
     Dosage: 80 AND 40 MG 1 LUMBAR EPIDURAL
     Route: 008
     Dates: start: 20031205, end: 20031205
  2. METHYLPREDNISOLONE ACETATE [Suspect]
     Indication: SCIATICA
     Dosage: 80 AND 40 MG 1 LUMBAR EPIDURAL
     Route: 008
     Dates: start: 20031205, end: 20031205
  3. METHYLPREDNISOLONE ACETATE [Suspect]
     Indication: BACK PAIN
     Dosage: 80 AND 40 MG 1 LUMBAR EPIDURAL
     Route: 008
     Dates: start: 20031217, end: 20031217
  4. METHYLPREDNISOLONE ACETATE [Suspect]
     Indication: SCIATICA
     Dosage: 80 AND 40 MG 1 LUMBAR EPIDURAL
     Route: 008
     Dates: start: 20031217, end: 20031217

REACTIONS (3)
  - ASEPTIC NECROSIS BONE [None]
  - BONE PAIN [None]
  - DIFFICULTY IN WALKING [None]
